FAERS Safety Report 9170119 (Version 1)
Quarter: 2013Q1

REPORT INFORMATION
  Report Type: Spontaneous
  Country: US (occurrence: None)
  Receive Date: 20130311
  Receipt Date: 20130311
  Transmission Date: 20140127
  Serious: Yes (Hospitalization)
  Sender: FDA-Public Use
  Company Number: 2013PR0090

PATIENT
  Age: 37 None
  Sex: Female

DRUGS (1)
  1. KINERET (ANAKINRA), NOT AVAILABLE [Suspect]
     Dosage: 100 MG(100MG,1 IN 1D)?10 DAYS
     Route: 058
     Dates: start: 20120418, end: 20120428

REACTIONS (3)
  - Injection site inflammation [None]
  - Skin induration [None]
  - Chills [None]
